FAERS Safety Report 7704162-X (Version None)
Quarter: 2011Q3

REPORT INFORMATION
  Report Type: 
  Country: None (occurrence: None)
  Receive Date: 20110823
  Receipt Date: 20110812
  Transmission Date: 20111222
  Serious: Yes (Hospitalization)
  Sender: FDA-Public Use
  Company Number: US-ACTELION-A-NJ2011-52712

PATIENT

DRUGS (2)
  1. TRACLEER [Suspect]
     Dosage: UNK
     Route: 048
     Dates: start: 20110801
  2. TRACLEER [Suspect]
     Indication: PULMONARY ARTERIAL HYPERTENSION
     Dosage: UNK
     Route: 048
     Dates: start: 20110411, end: 20110701

REACTIONS (3)
  - MALAISE [None]
  - INTESTINAL OBSTRUCTION [None]
  - GAIT DISTURBANCE [None]
